FAERS Safety Report 15365720 (Version 1)
Quarter: 2018Q3

REPORT INFORMATION
  Report Type: Spontaneous
  Country: ES (occurrence: ES)
  Receive Date: 20180910
  Receipt Date: 20180910
  Transmission Date: 20181010
  Serious: Yes (Other)
  Sender: FDA-Public Use
  Company Number: ES-MIDATECHPHARMA-2018-ES-000077

PATIENT
  Age: 61 Year
  Sex: Female

DRUGS (1)
  1. TAMOXIFEN (NON?SPECIFIC) [Suspect]
     Active Substance: TAMOXIFEN
     Indication: BREAST CANCER
     Dosage: 20 MG DAILY

REACTIONS (1)
  - Recall phenomenon [Unknown]
